FAERS Safety Report 14542870 (Version 2)
Quarter: 2018Q1

REPORT INFORMATION
  Report Type: Spontaneous
  Country: US (occurrence: US)
  Receive Date: 20180216
  Receipt Date: 20180306
  Transmission Date: 20180509
  Serious: Yes (Life-Threatening)
  Sender: FDA-Public Use
  Company Number: US-GLAXOSMITHKLINE-US2018026255

PATIENT
  Age: 80 Year
  Sex: Female

DRUGS (20)
  1. SPIRIVA [Concomitant]
     Active Substance: TIOTROPIUM BROMIDE MONOHYDRATE
  2. VITAMIN B12 [Concomitant]
     Active Substance: CYANOCOBALAMIN
  3. LIDOCAINE GEL [Concomitant]
     Active Substance: LIDOCAINE HYDROCHLORIDE
  4. PANTOPRAZOLE [Concomitant]
     Active Substance: PANTOPRAZOLE
  5. ADVAIR DISKUS [Suspect]
     Active Substance: FLUTICASONE PROPIONATE\SALMETEROL XINAFOATE
     Indication: ASTHMA
  6. NYSTATIN. [Concomitant]
     Active Substance: NYSTATIN
  7. ALBUTEROL MDI [Concomitant]
     Active Substance: ALBUTEROL
  8. SINGULAIR [Concomitant]
     Active Substance: MONTELUKAST SODIUM
  9. TESSALON [Concomitant]
     Active Substance: BENZONATATE
  10. THEOPHYLLINE [Concomitant]
     Active Substance: THEOPHYLLINE ANHYDROUS
  11. CODEINE [Concomitant]
     Active Substance: CODEINE
  12. FLUTICASONE NASAL [Concomitant]
     Active Substance: FLUTICASONE
  13. TIZANIDINE. [Concomitant]
     Active Substance: TIZANIDINE
  14. ADVAIR DISKUS [Suspect]
     Active Substance: FLUTICASONE PROPIONATE\SALMETEROL XINAFOATE
     Indication: CHRONIC OBSTRUCTIVE PULMONARY DISEASE
     Dosage: 1 PUFF(S), BID
     Route: 055
     Dates: start: 2012, end: 20180212
  15. DUONEB [Concomitant]
     Active Substance: ALBUTEROL SULFATE\IPRATROPIUM BROMIDE
  16. XANAX [Concomitant]
     Active Substance: ALPRAZOLAM
  17. ALBUTEROL NEBULIZER [Concomitant]
     Active Substance: ALBUTEROL
  18. CARAFATE [Concomitant]
     Active Substance: SUCRALFATE
  19. CLONAZEPAM. [Concomitant]
     Active Substance: CLONAZEPAM
  20. LOSARTAN. [Concomitant]
     Active Substance: LOSARTAN

REACTIONS (7)
  - Chronic obstructive pulmonary disease [Unknown]
  - Sinus congestion [Not Recovered/Not Resolved]
  - Condition aggravated [Unknown]
  - Bronchitis [Unknown]
  - Drug ineffective [Not Recovered/Not Resolved]
  - Wheezing [Recovering/Resolving]
  - Rhonchi [Recovering/Resolving]

NARRATIVE: CASE EVENT DATE: 201712
